FAERS Safety Report 18391799 (Version 1)
Quarter: 2020Q4

REPORT INFORMATION
  Report Type: Spontaneous
  Country: US (occurrence: US)
  Receive Date: 20201016
  Receipt Date: 20201016
  Transmission Date: 20210114
  Serious: Yes (Disabling, Other)
  Sender: FDA-Public Use
  Company Number: None

PATIENT
  Age: 60 Year
  Sex: Male
  Weight: 126 kg

DRUGS (15)
  1. METOPROLOL SUCCINATE 50 MG [Concomitant]
     Active Substance: METOPROLOL SUCCINATE
  2. ORENITRAM 2 MG [Concomitant]
  3. EVENING PRIMROSE OIL 1 GM + LA + GLA FIBER CAPSULES [Concomitant]
  4. ALPHA-LIPOIC ACID 300MG [Concomitant]
  5. TUMERIC 1 GM [Concomitant]
  6. TADALAFIL 20 MG [Concomitant]
     Active Substance: TADALAFIL
  7. ORENITRAM 2 MG [Concomitant]
  8. PANTOPRAZOLE SODIUM. [Concomitant]
     Active Substance: PANTOPRAZOLE SODIUM
  9. VITAMIN E 100 IU [Concomitant]
  10. INSPRA 50MG [Concomitant]
  11. TORSEMIDE 15 MG [Concomitant]
  12. SEAGATE OLIVE LEAF HOMEOPATHIC NASAL SPRAY BAPTISIA TINCTORIA [Suspect]
     Active Substance: HOMEOPATHICS
     Indication: NASAL CONGESTION
     Dosage: ?          QUANTITY:3 SPRAY(S);?
     Route: 055
     Dates: start: 20190501, end: 20201016
  13. ORENITRAM 2.125MG [Concomitant]
  14. METOPROLOL SUCCINATE 25 MG [Concomitant]
     Active Substance: METOPROLOL SUCCINATE
  15. MAGNESIUM TRIO 150 MG [Concomitant]

REACTIONS (6)
  - Contraindicated product administered [None]
  - Contraindicated product prescribed [None]
  - Pulmonary hypertension [None]
  - Sleep disorder [None]
  - Palpitations [None]
  - Supraventricular tachycardia [None]

NARRATIVE: CASE EVENT DATE: 20201016
